FAERS Safety Report 4553973-0 (Version None)
Quarter: 2005Q1

REPORT INFORMATION
  Report Type: 
  Country: None (occurrence: None)
  Receive Date: 20050118
  Receipt Date: 20050105
  Transmission Date: 20050727
  Serious: Yes (Hospitalization)
  Sender: FDA-Public Use
  Company Number: JP-JNJFOC-20041200926

PATIENT
  Sex: Female

DRUGS (5)
  1. REMICADE [Suspect]
     Route: 042
  2. REMICADE [Suspect]
     Route: 042
  3. REMICADE [Suspect]
     Indication: RHEUMATOID ARTHRITIS
     Route: 042
  4. RHEUMATREX [Concomitant]
  5. METHOTREXATE [Concomitant]

REACTIONS (4)
  - ASPERGILLOSIS [None]
  - CANDIDIASIS [None]
  - PNEUMONIA [None]
  - PSEUDOMONAS INFECTION [None]
